FAERS Safety Report 7167096-8 (Version None)
Quarter: 2010Q4

REPORT INFORMATION
  Report Type: 
  Country: None (occurrence: None)
  Receive Date: 20101216
  Receipt Date: 20101207
  Transmission Date: 20110411
  Serious: Yes (Death)
  Sender: FDA-Public Use
  Company Number: JP-GENZYME-FABR-1001593

PATIENT
  Sex: Male
  Weight: 58 kg

DRUGS (18)
  1. FABRAZYME [Suspect]
     Indication: FABRY'S DISEASE
     Dosage: 35 MG, Q4W
     Route: 042
     Dates: start: 20091214, end: 20100818
  2. FABRAZYME [Suspect]
     Dosage: 55 MG, Q2W
     Route: 042
     Dates: start: 20050404, end: 20091026
  3. TELMISARTAN [Concomitant]
     Indication: PRODUCT USED FOR UNKNOWN INDICATION
     Dosage: UNK
     Dates: end: 20091007
  4. FUROSEMIDE [Concomitant]
     Indication: PROPHYLAXIS
     Dosage: 80 MG, BID
     Dates: end: 20100927
  5. TEMOCAPRIL HYDROCHLORIDE [Concomitant]
     Indication: PRODUCT USED FOR UNKNOWN INDICATION
     Dosage: 2 MG, BID
     Dates: end: 20100427
  6. PRECIPITATED CALCIUM CARBONATE [Concomitant]
     Indication: PRODUCT USED FOR UNKNOWN INDICATION
     Dosage: 1000 MG, TID
     Dates: end: 20100927
  7. LANSOPRAZOLE [Concomitant]
     Indication: GASTROOESOPHAGEAL REFLUX DISEASE
     Dosage: 15 MG, QD
     Dates: end: 20100927
  8. NIFEDIPINE [Concomitant]
     Indication: PRODUCT USED FOR UNKNOWN INDICATION
     Dosage: 20 MG, TID
     Dates: end: 20100927
  9. NIFEDIPINE [Concomitant]
     Dosage: UNK
     Dates: start: 20091103, end: 20091103
  10. CARBAMAZEPINE [Concomitant]
     Indication: FABRY'S DISEASE
     Dosage: 200 MG, BID
     Dates: end: 20100927
  11. OLMESARTAN MEDOXOMIL [Concomitant]
     Indication: PRODUCT USED FOR UNKNOWN INDICATION
     Dosage: 20 MG, BID
     Dates: start: 20091008, end: 20100927
  12. ISOSORBIDE DINITRATE [Concomitant]
     Indication: PRODUCT USED FOR UNKNOWN INDICATION
     Dosage: UNK
     Dates: start: 20091103, end: 20091103
  13. CARVEDILOL [Concomitant]
     Indication: PRODUCT USED FOR UNKNOWN INDICATION
     Dosage: UNK
     Dates: start: 20091103, end: 20100331
  14. SEVELAMER HYDROCHLORIDE [Concomitant]
     Indication: PRODUCT USED FOR UNKNOWN INDICATION
     Dosage: 750 MG, TID
     Dates: start: 20091201, end: 20100927
  15. LANTHANUM CARBONATE HYDRATE [Concomitant]
     Indication: PRODUCT USED FOR UNKNOWN INDICATION
     Dosage: 500 MG, TID
     Dates: end: 20100927
  16. DARBEPOETIN ALFA (GENETICAL RECOMBINATION) [Concomitant]
     Indication: PRODUCT USED FOR UNKNOWN INDICATION
     Dosage: 120 MCG, 1X/W
     Dates: end: 20100927
  17. METOCLOPRAMIDE [Concomitant]
     Indication: PRODUCT USED FOR UNKNOWN INDICATION
     Dosage: 5 MG, UNK
     Dates: start: 20100512, end: 20100927
  18. FERRIC OXIDE SACCHARATED [Concomitant]
     Indication: PRODUCT USED FOR UNKNOWN INDICATION
     Dosage: 120 MG, 1X/W
     Dates: start: 20100630, end: 20100927

REACTIONS (1)
  - CARDIO-RESPIRATORY ARREST [None]
